FAERS Safety Report 6083960-5 (Version None)
Quarter: 2009Q1

REPORT INFORMATION
  Report Type: 
  Country: None (occurrence: None)
  Receive Date: 20090217
  Receipt Date: 20090217
  Transmission Date: 20090719
  Serious: No
  Sender: FDA-Public Use
  Company Number: None

PATIENT
  Sex: Male
  Weight: 103 kg

DRUGS (2)
  1. CASODEX [Suspect]
     Dosage: 1500 MG
  2. GOSERELIN [Suspect]
     Dosage: 3.6 MG

REACTIONS (2)
  - DEPRESSION [None]
  - MOOD SWINGS [None]
